FAERS Safety Report 4565266-6 (Version None)
Quarter: 2005Q1

REPORT INFORMATION
  Report Type: 
  Country: None (occurrence: None)
  Receive Date: 20050131
  Receipt Date: 20050118
  Transmission Date: 20050727
  Serious: Yes (Other)
  Sender: FDA-Public Use
  Company Number: BR-ROCHE-392982

PATIENT
  Age: 16 Year
  Sex: Female
  Weight: 45 kg

DRUGS (3)
  1. ROACUTAN [Suspect]
     Indication: ACNE
     Route: 048
     Dates: start: 20040715, end: 20040915
  2. ROACUTAN [Suspect]
     Route: 048
     Dates: start: 20040915, end: 20050107
  3. YASMIN [Concomitant]
     Indication: CONTRACEPTION
     Route: 048

REACTIONS (4)
  - BLOOD CHOLESTEROL INCREASED [None]
  - BLOOD PRESSURE DECREASED [None]
  - CHOLELITHIASIS [None]
  - FEELING COLD [None]
